FAERS Safety Report 6120414-1 (Version None)
Quarter: 2009Q1

REPORT INFORMATION
  Report Type: 
  Country: None (occurrence: None)
  Receive Date: 20090317
  Receipt Date: 20090306
  Transmission Date: 20090719
  Serious: Yes (Other)
  Sender: FDA-Public Use
  Company Number: PHHY2009CH08214

PATIENT
  Age: 9 Year
  Sex: Male

DRUGS (1)
  1. RITALIN [Suspect]
     Indication: DISTURBANCE IN ATTENTION
     Dosage: 5MG/DAY
     Dates: start: 20081201, end: 20090220

REACTIONS (6)
  - AFFECT LABILITY [None]
  - CRYING [None]
  - DYSPHORIA [None]
  - FEELING OF DESPAIR [None]
  - IRRITABILITY [None]
  - TENSION [None]
